FAERS Safety Report 19300340 (Version 2)
Quarter: 2021Q2

REPORT INFORMATION
  Report Type: Report from Study
  Country: US (occurrence: US)
  Receive Date: 20210525
  Receipt Date: 20210528
  Transmission Date: 20210717
  Serious: No
  Sender: FDA-Public Use
  Company Number: NVSC2021US109818

PATIENT
  Sex: Male

DRUGS (1)
  1. COSENTYX [Suspect]
     Active Substance: SECUKINUMAB
     Indication: PSORIASIS
     Dosage: 300 MG, QMO (Q WEEK FOR FIVE WEEKS AND
     Route: 058
     Dates: start: 20210322

REACTIONS (3)
  - Psoriasis [Not Recovered/Not Resolved]
  - Rash [Recovering/Resolving]
  - Pain in extremity [Recovering/Resolving]
